FAERS Safety Report 10666820 (Version 1)
Quarter: 2014Q4

REPORT INFORMATION
  Report Type: Spontaneous
  Country: AU (occurrence: AU)
  Receive Date: 20141222
  Receipt Date: 20141222
  Transmission Date: 20150529
  Serious: Yes (Other)
  Sender: FDA-Public Use
  Company Number: AU-ROCHE-1508056

PATIENT
  Sex: Female

DRUGS (3)
  1. HERCEPTIN [Suspect]
     Active Substance: TRASTUZUMAB
     Indication: BREAST CANCER METASTATIC
     Route: 065
  2. DOCETAXEL. [Suspect]
     Active Substance: DOCETAXEL
     Indication: BREAST CANCER METASTATIC
     Route: 065
  3. EXEMESTANE. [Suspect]
     Active Substance: EXEMESTANE
     Indication: BREAST CANCER METASTATIC
     Route: 065

REACTIONS (11)
  - Disease progression [Unknown]
  - Back pain [Unknown]
  - Troponin increased [Unknown]
  - Adverse drug reaction [Unknown]
  - Varices oesophageal [Unknown]
  - Myocardial fibrosis [Unknown]
  - Hepatic cirrhosis [Unknown]
  - Pyrexia [Unknown]
  - Myalgia [Unknown]
  - Liver function test abnormal [Recovering/Resolving]
  - Splenomegaly [Unknown]
